FAERS Safety Report 8625510-2 (Version None)
Quarter: 2012Q3

REPORT INFORMATION
  Report Type: 
  Country: None (occurrence: None)
  Receive Date: 20120827
  Receipt Date: 20120202
  Transmission Date: 20120928
  Serious: Yes (Hospitalization)
  Sender: FDA-Public Use
  Company Number: AU-ROCHE-1037966

PATIENT
  Sex: Male

DRUGS (1)
  1. LUCENTIS [Suspect]
     Indication: AGE-RELATED MACULAR DEGENERATION
     Dates: start: 20110808

REACTIONS (4)
  - FALL [None]
  - HAND FRACTURE [None]
  - MUSCULOSKELETAL CHEST PAIN [None]
  - CONTUSION [None]
